FAERS Safety Report 5306824-0 (Version None)
Quarter: 2007Q2

REPORT INFORMATION
  Report Type: 
  Country: None (occurrence: None)
  Receive Date: 20070420
  Receipt Date: 20070420
  Transmission Date: 20071010
  Serious: No
  Sender: FDA-Public Use
  Company Number: None

PATIENT

DRUGS (1)
  1. ZOCOR [Suspect]
     Dosage: 40     DAILY  ORAL
     Route: 048

REACTIONS (1)
  - NAUSEA [None]
